FAERS Safety Report 12241634 (Version 1)
Quarter: 2016Q2

REPORT INFORMATION
  Report Type: Spontaneous
  Country: US (occurrence: US)
  Receive Date: 20160406
  Receipt Date: 20160406
  Transmission Date: 20160815
  Serious: No
  Sender: FDA-Public Use
  Company Number: US-009507513-1603USA008830

PATIENT
  Sex: Male

DRUGS (1)
  1. LOTRISONE [Suspect]
     Active Substance: BETAMETHASONE DIPROPIONATE\CLOTRIMAZOLE
     Indication: SKIN DISCOLOURATION
     Dosage: UNK G, UNK

REACTIONS (2)
  - Prescription drug used without a prescription [Unknown]
  - Skin discolouration [Not Recovered/Not Resolved]
